FAERS Safety Report 5572970-X (Version None)
Quarter: 2007Q4

REPORT INFORMATION
  Report Type: 
  Country: None (occurrence: None)
  Receive Date: 20071224
  Receipt Date: 20071213
  Transmission Date: 20080405
  Serious: Yes (Other)
  Sender: FDA-Public Use
  Company Number: JP-BRISTOL-MYERS SQUIBB COMPANY-14021927

PATIENT
  Sex: Male

DRUGS (1)
  1. DESYREL [Suspect]
     Route: 051

REACTIONS (2)
  - PREGNANCY [None]
  - TRANSIENT TACHYPNOEA OF THE NEWBORN [None]
